FAERS Safety Report 4709742-1 (Version None)
Quarter: 2005Q2

REPORT INFORMATION
  Report Type: 
  Country: None (occurrence: None)
  Receive Date: 20050629
  Receipt Date: 20050520
  Transmission Date: 20051028
  Serious: No
  Sender: FDA-Public Use
  Company Number: 05P-163-0300928-00

PATIENT
  Age: 44 Year
  Sex: Male
  Weight: 87.9978 kg

DRUGS (3)
  1. HUMIRA [Suspect]
     Indication: RHEUMATOID ARTHRITIS
     Dosage: 40 MG, 1 IN 2 WK, SUBCUTANEOUS
     Route: 058
     Dates: start: 20040101
  2. PREDNISONE TAB [Concomitant]
  3. SULFASALAZINE [Concomitant]

REACTIONS (1)
  - OEDEMA PERIPHERAL [None]
